FAERS Safety Report 20095889 (Version 1)
Quarter: 2021Q4

REPORT INFORMATION
  Report Type: Spontaneous
  Country: US (occurrence: US)
  Receive Date: 20211122
  Receipt Date: 20211122
  Transmission Date: 20220303
  Serious: No
  Sender: FDA-Public Use
  Company Number: US-BAXTER-2021BAX036386

PATIENT
  Age: 41 Year
  Sex: Male

DRUGS (1)
  1. LEVOFLOXACIN HEMIHYDRATE [Suspect]
     Active Substance: LEVOFLOXACIN
     Indication: Skin infection
     Dosage: 750 MG IN 150 ML
     Route: 042
     Dates: start: 20211111, end: 20211111

REACTIONS (2)
  - Peripheral swelling [Recovered/Resolved]
  - Pain in extremity [Recovered/Resolved]

NARRATIVE: CASE EVENT DATE: 20211111
